FAERS Safety Report 6467075-X (Version None)
Quarter: 2009Q4

REPORT INFORMATION
  Report Type: 
  Country: None (occurrence: None)
  Receive Date: 20091202
  Receipt Date: 20091119
  Transmission Date: 20100525
  Serious: Yes (Other)
  Sender: FDA-Public Use
  Company Number: CH-PFIZER INC-2009299863

PATIENT
  Sex: Male

DRUGS (14)
  1. CHAMPIX [Suspect]
     Indication: SMOKING CESSATION THERAPY
     Dosage: 1 DF, 1X/DAY
     Route: 048
     Dates: start: 20090909, end: 20090919
  2. CHAMPIX [Interacting]
     Dosage: 2 DF, 1X/DAY
     Route: 048
     Dates: start: 20090920, end: 20091005
  3. PROGRAF [Interacting]
     Dosage: 1.5 MG, ALTERNATE DAY
     Route: 048
     Dates: end: 20090919
  4. PROGRAF [Interacting]
     Dosage: 2 MG, ALTERNATE DAY
     Route: 048
     Dates: start: 20090920, end: 20091001
  5. PROGRAF [Interacting]
     Dosage: 3 MG, ALTERNATE DAY
     Route: 048
     Dates: start: 20091002
  6. CELLCEPT [Concomitant]
     Dosage: 100 MG, ALTERNATE DAY
  7. FOLIC ACID [Concomitant]
     Dosage: UNK
  8. MIRCERA [Concomitant]
     Dosage: UNK
  9. NEPHROTRANS [Concomitant]
     Dosage: UNK
  10. TENORMIN [Concomitant]
     Dosage: UNK
  11. COZAAR [Concomitant]
     Dosage: UNK
  12. EZETROL [Concomitant]
     Dosage: UNK
  13. PRAVASTATIN SODIUM [Concomitant]
     Dosage: UNK
  14. NORVASC [Concomitant]
     Dosage: UNK

REACTIONS (1)
  - DRUG LEVEL BELOW THERAPEUTIC [None]
